FAERS Safety Report 19984495 (Version 1)
Quarter: 2021Q4

REPORT INFORMATION
  Report Type: Spontaneous
  Country: US (occurrence: US)
  Receive Date: 20211022
  Receipt Date: 20211022
  Transmission Date: 20220303
  Serious: Yes (Hospitalization)
  Sender: FDA-Public Use
  Company Number: US-JNJFOC-20211020480

PATIENT
  Age: 29 Year
  Sex: Female
  Weight: 66.7 kg

DRUGS (1)
  1. TYLENOL EXTRA STRENGTH [Suspect]
     Active Substance: ACETAMINOPHEN
     Indication: Suicide attempt
     Dosage: ACETAMINOPHEN (500MG) 25000 MG FOR 1 DAY
     Route: 048
     Dates: start: 20010827, end: 20010827

REACTIONS (5)
  - Urinary tract infection enterococcal [Recovering/Resolving]
  - Urinary tract infection staphylococcal [Recovering/Resolving]
  - Suicide attempt [Recovering/Resolving]
  - Acute hepatic failure [Recovering/Resolving]
  - Intentional overdose [Recovering/Resolving]

NARRATIVE: CASE EVENT DATE: 20010904
